FAERS Safety Report 18665384 (Version 2)
Quarter: 2021Q1

REPORT INFORMATION
  Report Type: Report from Study
  Country: US (occurrence: US)
  Receive Date: 20201225
  Receipt Date: 20210105
  Transmission Date: 20210419
  Serious: Yes (Other)
  Sender: FDA-Public Use
  Company Number: NVSC2020US336823

PATIENT
  Age: 57 Year
  Sex: Female

DRUGS (1)
  1. ENTRESTO [Suspect]
     Active Substance: SACUBITRIL\VALSARTAN
     Indication: PRODUCT USED FOR UNKNOWN INDICATION
     Dosage: UNK, BID
     Route: 048

REACTIONS (6)
  - Throat clearing [Unknown]
  - Dysphonia [Unknown]
  - Cardiac failure [Unknown]
  - Coronavirus test positive [Unknown]
  - Frustration tolerance decreased [Unknown]
  - Cough [Unknown]

NARRATIVE: CASE EVENT DATE: 2020
